FAERS Safety Report 8113558-6 (Version None)
Quarter: 2012Q1

REPORT INFORMATION
  Report Type: 
  Country: None (occurrence: None)
  Receive Date: 20120203
  Receipt Date: 20120131
  Transmission Date: 20120608
  Serious: Yes (Hospitalization)
  Sender: FDA-Public Use
  Company Number: IT-PFIZER INC-2012014168

PATIENT
  Age: 80 Year
  Sex: Male

DRUGS (11)
  1. IBUPROFEN [Suspect]
     Indication: ARTHRALGIA
     Dosage: 1 DF, DAILY
     Route: 048
     Dates: start: 20111126, end: 20111211
  2. LASIX [Concomitant]
     Dosage: 125 MG, UNK
  3. LOSARTAN POTASSIUM [Concomitant]
     Dosage: 25 MG, UNK
  4. NOVOMIX [Concomitant]
     Dosage: 24 IU, UNK
  5. MEDROL [Suspect]
     Indication: RHEUMATOID ARTHRITIS
     Dosage: 2 MG, DAILY
     Route: 048
     Dates: start: 20090101, end: 20111212
  6. SIMVASTATIN [Concomitant]
  7. WARFARIN SODIUM [Suspect]
     Indication: CARDIAC VALVE PROSTHESIS USER
     Dosage: 1 DF, AS NEEDED
     Route: 048
     Dates: start: 20100101, end: 20111212
  8. LERCADIP [Concomitant]
  9. NOVORAPID [Concomitant]
     Dosage: 20 IU, UNK
  10. TENORMIN [Concomitant]
     Dosage: 50 MG, UNK
  11. NITROGLYCERIN [Concomitant]
     Dosage: 1 DF, UNK

REACTIONS (6)
  - RENAL FAILURE CHRONIC [None]
  - HAEMORRHOIDS [None]
  - DUODENAL ULCER HAEMORRHAGE [None]
  - SHOCK HAEMORRHAGIC [None]
  - GASTRITIS EROSIVE [None]
  - DIVERTICULUM INTESTINAL [None]
